FAERS Safety Report 7980666-X (Version None)
Quarter: 2011Q4

REPORT INFORMATION
  Report Type: 
  Country: None (occurrence: None)
  Receive Date: 20111214
  Receipt Date: 20111206
  Transmission Date: 20120403
  Serious: Yes (Other)
  Sender: FDA-Public Use
  Company Number: IT-PFIZER INC-2011298570

PATIENT
  Age: 42 Year
  Sex: Female

DRUGS (7)
  1. AULIN [Suspect]
     Dosage: 100 MG, AS NEEDED
     Route: 048
     Dates: start: 20091210
  2. LANSOPRAZOLE [Suspect]
     Dosage: 30 MG, 1X/DAY
     Route: 048
     Dates: start: 20091210
  3. METHOTREXATE [Suspect]
     Indication: POLYARTHRITIS
     Dosage: 15 MG, WEEKLY
     Route: 030
     Dates: start: 20100514
  4. FOLINA [Concomitant]
     Dosage: 5 MG, WEEKLY
     Route: 048
     Dates: start: 20100514
  5. ENBREL [Suspect]
     Indication: POLYARTHRITIS
     Dosage: 25 MG, 2X/WEEK
     Route: 058
     Dates: start: 20091210, end: 20100928
  6. MEDROL [Suspect]
     Indication: POLYARTHRITIS
     Dosage: 8 MG, 1X/DAY
     Route: 048
     Dates: start: 20091210
  7. NATECAL D [Concomitant]
     Dosage: UNK
     Route: 048
     Dates: start: 20091210

REACTIONS (1)
  - GASTRIC ULCER [None]
